FAERS Safety Report 9550216 (Version 2)
Quarter: 2013Q4

REPORT INFORMATION
  Report Type: Report from Study
  Country: BE (occurrence: BE)
  Receive Date: 20130924
  Receipt Date: 20131015
  Transmission Date: 20140711
  Serious: Yes (Death)
  Sender: FDA-Public Use
  Company Number: PHHY2013BE105039

PATIENT
  Sex: Female

DRUGS (2)
  1. SANDOSTATINE LAR [Suspect]
     Indication: NEUROENDOCRINE TUMOUR
     Dosage: 30 MG, MONTHLY
     Route: 030
  2. SANDOSTATINE LAR [Suspect]
     Dosage: 30 MG, MONTHLY
     Route: 030
     Dates: start: 20130620

REACTIONS (1)
  - Malignant neoplasm progression [Fatal]
